FAERS Safety Report 20737314 (Version 1)
Quarter: 2022Q2

REPORT INFORMATION
  Report Type: Spontaneous
  Country: CN (occurrence: None)
  Receive Date: 20220421
  Receipt Date: 20220421
  Transmission Date: 20220721
  Serious: Yes (Hospitalization)
  Sender: FDA-Public Use
  Company Number: 2022A146121

PATIENT
  Age: 66 Year
  Sex: Male
  Weight: 60 kg

DRUGS (3)
  1. IMFINZI [Suspect]
     Active Substance: DURVALUMAB
     Indication: Non-small cell lung cancer stage III
     Dosage: 500.0MG EVERY CYCLE
     Route: 042
     Dates: start: 20211117, end: 20211202
  2. IMFINZI [Suspect]
     Active Substance: DURVALUMAB
     Indication: Non-small cell lung cancer stage III
     Dosage: EVERY CYCLE
     Route: 042
     Dates: start: 20220324
  3. LANDI [Concomitant]

REACTIONS (3)
  - Liver function test abnormal [Recovered/Resolved]
  - Renal function test abnormal [Recovered/Resolved]
  - Platelet count decreased [Recovered/Resolved]
